FAERS Safety Report 5103265-6 (Version None)
Quarter: 2006Q3

REPORT INFORMATION
  Report Type: 
  Country: None (occurrence: None)
  Receive Date: 20060913
  Receipt Date: 20060829
  Transmission Date: 20061208
  Serious: Yes (Other)
  Sender: FDA-Public Use
  Company Number: 2006GB01529

PATIENT
  Age: 61 Year
  Sex: Male
  Weight: 101.6 kg

DRUGS (1)
  1. OMEPRAZOLE [Suspect]
     Route: 048
     Dates: start: 19920101

REACTIONS (2)
  - CARCINOID TUMOUR OF THE SMALL BOWEL [None]
  - HEPATIC NEOPLASM [None]
